FAERS Safety Report 20850299 (Version 1)
Quarter: 2022Q2

REPORT INFORMATION
  Report Type: Spontaneous
  Country: US (occurrence: US)
  Receive Date: 20220519
  Receipt Date: 20220519
  Transmission Date: 20220720
  Serious: No
  Sender: FDA-Public Use
  Company Number: US-KALA PHARAMACEUTICALS-2022KLA00007

PATIENT
  Sex: Female

DRUGS (2)
  1. EYSUVIS [Suspect]
     Active Substance: LOTEPREDNOL ETABONATE
     Indication: Inflammation
     Dosage: 1 DROP, 2X/DAY
     Route: 047
  2. EYSUVIS [Suspect]
     Active Substance: LOTEPREDNOL ETABONATE
     Dosage: 1 DROP, 2X/DAY
     Route: 047
     Dates: start: 202203

REACTIONS (4)
  - Inflammation [Unknown]
  - Fatigue [Not Recovered/Not Resolved]
  - Exposure via skin contact [Not Recovered/Not Resolved]
  - Incorrect dose administered [Not Recovered/Not Resolved]
